FAERS Safety Report 7487565-0 (Version None)
Quarter: 2011Q2

REPORT INFORMATION
  Report Type: 
  Country: None (occurrence: None)
  Receive Date: 20110511
  Receipt Date: 20110426
  Transmission Date: 20111010
  Serious: Yes (Other)
  Sender: FDA-Public Use
  Company Number: ES-DEXPHARM-20110472

PATIENT

DRUGS (1)
  1. CHLORHEXIDINE-METHANOL (USE-SKIN CLEANSING FOR UMBILICAL CATHETER INSE [Suspect]

REACTIONS (1)
  - CHEMICAL INJURY [None]
